FAERS Safety Report 11009031 (Version 1)
Quarter: 2015Q2

REPORT INFORMATION
  Report Type: Spontaneous
  Country: JP (occurrence: JP)
  Receive Date: 20150410
  Receipt Date: 20150410
  Transmission Date: 20150821
  Serious: Yes (Other)
  Sender: FDA-Public Use
  Company Number: JP-ROCHE-1554894

PATIENT
  Age: 78 Year
  Sex: Female

DRUGS (9)
  1. NEOMALLERMIN [Concomitant]
     Indication: PREMEDICATION
     Route: 048
     Dates: start: 20150127, end: 20150213
  2. LANSOPRAZOLE. [Concomitant]
     Active Substance: LANSOPRAZOLE
  3. RITUXAN [Suspect]
     Active Substance: RITUXIMAB
     Indication: NON-HODGKIN^S LYMPHOMA
     Route: 042
     Dates: start: 20150127, end: 20150213
  4. PINORUBIN [Concomitant]
     Active Substance: PIRARUBICIN
     Indication: DIFFUSE LARGE B-CELL LYMPHOMA
     Dosage: DAY 1 OF EVERY CYCLE
     Route: 042
     Dates: start: 20150123
  5. PREDNISOLONE. [Concomitant]
     Active Substance: PREDNISOLONE
     Indication: DIFFUSE LARGE B-CELL LYMPHOMA
     Dosage: DAY 1 TO 5 OF EVERY CYCLE.
     Route: 048
     Dates: start: 20150123, end: 20150221
  6. ONCOVIN [Concomitant]
     Active Substance: VINCRISTINE SULFATE
     Indication: DIFFUSE LARGE B-CELL LYMPHOMA
     Dosage: DAY 1 OF EVERY LIFE CYCLE.
     Route: 042
     Dates: start: 20150123, end: 20150226
  7. LOXOPROFEN SODIUM [Concomitant]
     Active Substance: LOXOPROFEN SODIUM
     Route: 048
     Dates: start: 20150127, end: 20150213
  8. FILGRASTIM [Concomitant]
     Active Substance: FILGRASTIM
     Route: 065
  9. ENDOXAN [Concomitant]
     Active Substance: CYCLOPHOSPHAMIDE
     Dosage: DAY 1 OF EVERY CYCLE.
     Route: 042
     Dates: start: 20150123, end: 20150226

REACTIONS (1)
  - Pericarditis [Not Recovered/Not Resolved]
